FAERS Safety Report 12189739 (Version 7)
Quarter: 2018Q3

REPORT INFORMATION
  Report Type: Report from Study
  Country: TW (occurrence: TW)
  Receive Date: 20160318
  Receipt Date: 20180703
  Transmission Date: 20181010
  Serious: Yes (Hospitalization, Other)
  Sender: FDA-Public Use
  Company Number: TW-PFIZER INC-2016002935

PATIENT
  Age: 34 Year
  Sex: Female
  Weight: 67 kg

DRUGS (5)
  1. TOFACITINIB CITRATE [Suspect]
     Active Substance: TOFACITINIB CITRATE
     Indication: PSORIATIC ARTHROPATHY
     Dosage: 5 MG, BID
     Route: 048
     Dates: start: 20150921
  2. STROCAIN /00130301/ [Concomitant]
     Indication: PROPHYLAXIS
     Dosage: 1 TAB, BID
     Route: 048
     Dates: start: 20140207
  3. MEITIFEN [Concomitant]
     Indication: PSORIATIC ARTHROPATHY
     Dosage: 75 MG, BID
     Route: 048
     Dates: start: 20140207
  4. SCANOL [Concomitant]
     Indication: PSORIATIC ARTHROPATHY
     Dosage: 500 MG, BID
     Route: 048
     Dates: start: 20140421
  5. ARAVA [Concomitant]
     Active Substance: LEFLUNOMIDE
     Indication: PSORIATIC ARTHROPATHY
     Dosage: 10 MG, BID
     Route: 048
     Dates: start: 20140728

REACTIONS (1)
  - Pulmonary arterial hypertension [Recovered/Resolved]

NARRATIVE: CASE EVENT DATE: 20151019
